FAERS Safety Report 4894177-1 (Version None)
Quarter: 2006Q1

REPORT INFORMATION
  Report Type: 
  Country: None (occurrence: None)
  Receive Date: 20060127
  Receipt Date: 20050919
  Transmission Date: 20060701
  Serious: No
  Sender: FDA-Public Use
  Company Number: US-GLAXOSMITHKLINE-A0574832A

PATIENT
  Age: 40 Year
  Sex: Female

DRUGS (2)
  1. BUPROPION [Suspect]
     Indication: AUTONOMIC NEUROPATHY
     Dosage: 100MG UNKNOWN
     Route: 048
  2. NO CONCURRENT MEDICATION [Concomitant]

REACTIONS (2)
  - AUTONOMIC NERVOUS SYSTEM IMBALANCE [None]
  - DRUG INEFFECTIVE [None]
